FAERS Safety Report 11735122 (Version 1)
Quarter: 2015Q4

REPORT INFORMATION
  Report Type: Spontaneous
  Country: RU (occurrence: RU)
  Receive Date: 20151113
  Receipt Date: 20151113
  Transmission Date: 20160304
  Serious: Yes (Other)
  Sender: FDA-Public Use
  Company Number: RU-BAYER-2015-461403

PATIENT
  Age: 38 Year
  Sex: Female
  Weight: 54 kg

DRUGS (1)
  1. MIRENA [Suspect]
     Active Substance: LEVONORGESTREL
     Indication: CONTRACEPTION
     Dosage: 20 MCG/24HR, CONT
     Route: 015
     Dates: start: 201306

REACTIONS (4)
  - Gallbladder disorder [Not Recovered/Not Resolved]
  - Nausea [None]
  - Blood cholesterol increased [Not Recovered/Not Resolved]
  - Procedural nausea [Not Recovered/Not Resolved]

NARRATIVE: CASE EVENT DATE: 201306
